FAERS Safety Report 6625829-0 (Version None)
Quarter: 2010Q1

REPORT INFORMATION
  Report Type: 
  Country: None (occurrence: None)
  Receive Date: 20100310
  Receipt Date: 20100304
  Transmission Date: 20100710
  Serious: Yes (Hospitalization, Other)
  Sender: FDA-Public Use
  Company Number: US-RB-027677-09

PATIENT
  Age: 53 Year
  Sex: Male

DRUGS (1)
  1. SUBOXONE [Suspect]
     Route: 060
     Dates: start: 20070101

REACTIONS (4)
  - DRUG DEPENDENCE [None]
  - FATIGUE [None]
  - LIBIDO DECREASED [None]
  - MYOCARDIAL INFARCTION [None]
